FAERS Safety Report 10121007 (Version 2)
Quarter: 2014Q2

REPORT INFORMATION
  Report Type: Spontaneous
  Country: SK (occurrence: SK)
  Receive Date: 20140425
  Receipt Date: 20140508
  Transmission Date: 20141212
  Serious: Yes (Death, Hospitalization)
  Sender: FDA-Public Use
  Company Number: SK-GLAXOSMITHKLINE-B0988561A

PATIENT
  Age: 52 Year
  Sex: 0

DRUGS (5)
  1. LAPATINIB [Suspect]
     Indication: BREAST CANCER
     Route: 065
     Dates: start: 20110715, end: 20130610
  2. CAPECITABINE [Suspect]
     Indication: BREAST CANCER
     Route: 065
     Dates: start: 20110715, end: 20110916
  3. LETROZOLE [Suspect]
     Indication: BREAST CANCER
     Route: 065
     Dates: start: 20111024, end: 20130610
  4. TRASTUZUMAB [Suspect]
     Indication: BREAST CANCER
     Dates: start: 20130712
  5. VINORELBINE [Suspect]
     Indication: BREAST CANCER
     Dates: start: 20130712

REACTIONS (8)
  - Breast cancer [Fatal]
  - Eczema [Unknown]
  - Pulmonary embolism [Unknown]
  - Cor pulmonale [Unknown]
  - Haematoma [Unknown]
  - Abscess [Unknown]
  - Sepsis [Unknown]
  - Disease progression [Unknown]
